FAERS Safety Report 18857811 (Version 2)
Quarter: 2021Q2

REPORT INFORMATION
  Report Type: Spontaneous
  Country: JP (occurrence: JP)
  Receive Date: 20210208
  Receipt Date: 20210504
  Transmission Date: 20210717
  Serious: Yes (Other)
  Sender: FDA-Public Use
  Company Number: JP-AMGEN-JPNSP2021019946

PATIENT
  Age: 39 Year
  Sex: Female
  Weight: 110 kg

DRUGS (19)
  1. CARVEDILOL. [Concomitant]
     Active Substance: CARVEDILOL
     Dosage: 15 MG, EVERYDAY
     Route: 048
  2. CORALAN [Suspect]
     Active Substance: IVABRADINE HYDROCHLORIDE
     Indication: CARDIAC FAILURE CHRONIC
     Dosage: 5 MG, EVERYDAY ONCE A DAY
     Route: 048
  3. CORALAN [Suspect]
     Active Substance: IVABRADINE HYDROCHLORIDE
     Dosage: 15 MG, EVERYDAY
     Route: 048
  4. CARVEDILOL. [Concomitant]
     Active Substance: CARVEDILOL
     Dosage: 20 MG, EVERYDAY
     Route: 048
  5. ENALAPRIL [Concomitant]
     Active Substance: ENALAPRIL
     Dosage: 10 MG, EVERYDAY
     Route: 065
  6. EMPAGLIFLOZIN [Concomitant]
     Active Substance: EMPAGLIFLOZIN
     Indication: PRODUCT USED FOR UNKNOWN INDICATION
     Dosage: 10 MG, EVERYDAY
     Route: 065
  7. ENALAPRIL [Concomitant]
     Active Substance: ENALAPRIL
     Dosage: 20 MG, EVERYDAY
     Route: 065
  8. ENALAPRIL [Concomitant]
     Active Substance: ENALAPRIL
     Dosage: 17.5 MG, EVERYDAY
     Route: 065
  9. CARVEDILOL. [Concomitant]
     Active Substance: CARVEDILOL
     Dosage: 10 MG, Q12H
     Route: 048
  10. ENALAPRIL [Concomitant]
     Active Substance: ENALAPRIL
     Indication: PRODUCT USED FOR UNKNOWN INDICATION
     Dosage: 7.5 MG(5MG IN THE MORNING, 2.5MG IN THE EVENING)
     Route: 065
  11. CORALAN [Suspect]
     Active Substance: IVABRADINE HYDROCHLORIDE
     Dosage: 10 MG, EVERYDAY
     Route: 048
  12. CARVEDILOL. [Concomitant]
     Active Substance: CARVEDILOL
     Dosage: 17.5 MG, EVERYDAY
     Route: 048
  13. OLOPATADINE HYDROCHLORIDE. [Concomitant]
     Active Substance: OLOPATADINE HYDROCHLORIDE
     Indication: PRODUCT USED FOR UNKNOWN INDICATION
     Dosage: 5 MG, Q12H
     Route: 048
  14. CARVEDILOL. [Concomitant]
     Active Substance: CARVEDILOL
     Indication: PRODUCT USED FOR UNKNOWN INDICATION
     Dosage: 15 MG, EVERYDAY
     Route: 048
  15. ENALAPRIL [Concomitant]
     Active Substance: ENALAPRIL
     Dosage: 15 MG, EVERYDAY
     Route: 065
  16. SPIRONOLACTONE. [Concomitant]
     Active Substance: SPIRONOLACTONE
     Indication: PRODUCT USED FOR UNKNOWN INDICATION
     Dosage: 25 MG, EVERYDAY
     Route: 048
  17. AZOSEMIDE [Concomitant]
     Active Substance: AZOSEMIDE
     Indication: PRODUCT USED FOR UNKNOWN INDICATION
     Dosage: 60 MG, EVERYDAY
     Route: 048
  18. CORALAN [Suspect]
     Active Substance: IVABRADINE HYDROCHLORIDE
     Dosage: 10 MG, EVERYDAY
     Route: 048
  19. ENALAPRIL [Concomitant]
     Active Substance: ENALAPRIL
     Dosage: 12.5 MG, EVERYDAY
     Route: 065

REACTIONS (2)
  - Bradycardia [Recovered/Resolved]
  - Product use issue [Recovered/Resolved]

NARRATIVE: CASE EVENT DATE: 2021
